FAERS Safety Report 5119888-4 (Version None)
Quarter: 2006Q3

REPORT INFORMATION
  Report Type: 
  Country: None (occurrence: None)
  Receive Date: 20060929
  Receipt Date: 20060919
  Transmission Date: 20061208
  Serious: Yes (Other)
  Sender: FDA-Public Use
  Company Number: HQWYE926220SEP06

PATIENT
  Age: 71 Year
  Sex: Female
  Weight: 89.89 kg

DRUGS (2)
  1. EFFEXOR XR [Suspect]
     Indication: FIBROMYALGIA
     Dosage: 75 MG 1X PER 1 DAY ORAL
     Route: 048
     Dates: start: 20010101
  2. SYNTHROID [Concomitant]

REACTIONS (1)
  - BREAST CANCER FEMALE [None]
